FAERS Safety Report 9558099 (Version 2)
Quarter: 2014Q1

REPORT INFORMATION
  Report Type: Spontaneous
  Country: US (occurrence: US)
  Receive Date: 20130926
  Receipt Date: 20140102
  Transmission Date: 20141002
  Serious: Yes (Hospitalization, Other)
  Sender: FDA-Public Use
  Company Number: US-UCBSA-098021

PATIENT
  Age: 40 Year
  Sex: Male
  Weight: 92.79 kg

DRUGS (2)
  1. CIMZIA [Suspect]
     Indication: CROHN^S DISEASE
     Route: 058
     Dates: start: 201210
  2. NO CONCOMITANT MEDICATION [Concomitant]

REACTIONS (3)
  - Intervertebral disc protrusion [Not Recovered/Not Resolved]
  - Nerve injury [Not Recovered/Not Resolved]
  - Back pain [Not Recovered/Not Resolved]
